FAERS Safety Report 11373348 (Version 1)
Quarter: 2015Q3

REPORT INFORMATION
  Report Type: Spontaneous
  Country: US (occurrence: US)
  Receive Date: 20150811
  Receipt Date: 20150811
  Transmission Date: 20151125
  Serious: No
  Sender: FDA-Public Use
  Company Number: US-ELI_LILLY_AND_COMPANY-US201210005883

PATIENT
  Sex: Female
  Weight: 53.97 kg

DRUGS (3)
  1. TRACLEER [Concomitant]
     Active Substance: BOSENTAN
  2. REMODULIN [Concomitant]
     Active Substance: TREPROSTINIL
     Indication: COR PULMONALE CHRONIC
     Dosage: UNK
     Dates: start: 20120924
  3. ADCIRCA [Suspect]
     Active Substance: TADALAFIL
     Dosage: UNK

REACTIONS (2)
  - Dizziness [Unknown]
  - Headache [Unknown]
